FAERS Safety Report 19674333 (Version 1)
Quarter: 2021Q3

REPORT INFORMATION
  Report Type: Spontaneous
  Country: US (occurrence: US)
  Receive Date: 20210809
  Receipt Date: 20210809
  Transmission Date: 20211014
  Serious: No
  Sender: FDA-Public Use
  Company Number: US-AUROBINDO-AUR-APL-2021-022183

PATIENT
  Age: 5 Year
  Sex: Male
  Weight: 21 kg

DRUGS (1)
  1. AMOXICILLIN+CLAVULANATE POTASSIUM FOR ORAL SUSPENSION USP 250MG/62.5MG [Suspect]
     Active Substance: AMOXICILLIN\CLAVULANATE POTASSIUM
     Indication: ANIMAL BITE
     Dosage: 9.5 MILLILITER, TWO TIMES A DAY
     Route: 048
     Dates: start: 20210509, end: 20210516

REACTIONS (1)
  - Poor quality product administered [Unknown]
